FAERS Safety Report 4433100-0 (Version None)
Quarter: 2004Q3

REPORT INFORMATION
  Report Type: 
  Country: None (occurrence: None)
  Receive Date: 20040823
  Receipt Date: 20040811
  Transmission Date: 20050211
  Serious: Yes (Death, Hospitalization, Other)
  Sender: FDA-Public Use
  Company Number: 04-306-0929

PATIENT
  Sex: Male

DRUGS (1)
  1. CLADRIBINE [Suspect]
     Indication: HAIRY CELL LEUKAEMIA

REACTIONS (3)
  - CAPILLARY LEAK SYNDROME [None]
  - RENAL FAILURE [None]
  - SEPSIS [None]
